FAERS Safety Report 5128015-9 (Version None)
Quarter: 2006Q4

REPORT INFORMATION
  Report Type: 
  Country: None (occurrence: None)
  Receive Date: 20061016
  Receipt Date: 20060906
  Transmission Date: 20070319
  Serious: Yes (Life-Threatening)
  Sender: FDA-Public Use
  Company Number: PT-SANOFI-SYNTHELABO-A01200607346

PATIENT
  Sex: Female
  Weight: 69 kg

DRUGS (4)
  1. FOLINIC ACID [Concomitant]
     Indication: COLON CANCER
     Dosage: UNK
     Route: 042
     Dates: start: 20060731, end: 20060731
  2. FLUOROURACIL [Concomitant]
     Indication: COLON CANCER
     Dosage: UNK
     Route: 042
     Dates: start: 20060731, end: 20060731
  3. ELOXATIN [Suspect]
     Indication: COLON CANCER
     Dosage: UNK
     Route: 041
     Dates: start: 20060717, end: 20060717
  4. ELOXATIN [Suspect]
     Dosage: UNK
     Route: 041
     Dates: start: 20060731, end: 20060731

REACTIONS (7)
  - ANXIETY [None]
  - CHEST PAIN [None]
  - DRUG INTERACTION [None]
  - ERYTHEMA [None]
  - HYPERTENSION [None]
  - PRURITUS [None]
  - VOMITING [None]
